FAERS Safety Report 18925402 (Version 2)
Quarter: 2021Q2

REPORT INFORMATION
  Report Type: Spontaneous
  Country: UZ (occurrence: UZ)
  Receive Date: 20210223
  Receipt Date: 20210414
  Transmission Date: 20210717
  Serious: Yes (Death)
  Sender: FDA-Public Use
  Company Number: UZ-JNJFOC-20210229801

PATIENT
  Age: 55 Year
  Sex: Male
  Weight: 78 kg

DRUGS (5)
  1. CYCLOSERINE. [Suspect]
     Active Substance: CYCLOSERINE
     Indication: TUBERCULOSIS
     Dosage: 750 (UNSPECIFIED UNITS)
     Route: 065
     Dates: start: 20191024
  2. SIRTURO [Suspect]
     Active Substance: BEDAQUILINE FUMARATE
     Indication: TUBERCULOSIS
     Route: 048
     Dates: start: 20191024
  3. CLOFAZIMINE [Suspect]
     Active Substance: CLOFAZIMINE
     Indication: TUBERCULOSIS
     Dosage: 100 (UNSPECIFIED UNITS)
     Route: 065
     Dates: start: 20191024
  4. LEVOFLOXACIN. [Suspect]
     Active Substance: LEVOFLOXACIN
     Indication: TUBERCULOSIS
     Dosage: 1000 (UNSPECIFIED UNITS)
     Route: 065
     Dates: start: 20191024
  5. LINEZOLID. [Suspect]
     Active Substance: LINEZOLID
     Indication: TUBERCULOSIS
     Dosage: 600 (UNSPECIFIED UNITS)
     Route: 065
     Dates: start: 20191024

REACTIONS (4)
  - Type 2 diabetes mellitus [Fatal]
  - Hypertensive heart disease [Fatal]
  - Tuberculosis [Fatal]
  - Myocardial ischaemia [Fatal]
